FAERS Safety Report 7479187-2 (Version None)
Quarter: 2011Q2

REPORT INFORMATION
  Report Type: 
  Country: None (occurrence: None)
  Receive Date: 20110513
  Receipt Date: 20110503
  Transmission Date: 20111010
  Serious: Yes (Hospitalization)
  Sender: FDA-Public Use
  Company Number: A0803286A

PATIENT
  Age: 54 Year
  Sex: Male

DRUGS (18)
  1. GLUCOPHAGE [Concomitant]
  2. NIASPAN [Concomitant]
  3. ACIPHEX [Concomitant]
  4. FUROSEMIDE [Concomitant]
  5. LANTUS [Concomitant]
  6. CRESTOR [Concomitant]
  7. PAXIL [Concomitant]
  8. AVAPRO [Concomitant]
  9. ZOCOR [Concomitant]
  10. METOPROLOL SUCCINATE [Concomitant]
  11. AVANDIA [Suspect]
     Indication: DIABETES MELLITUS
     Dosage: 8MG PER DAY
     Route: 048
     Dates: start: 20001001, end: 20061218
  12. ASPIRIN [Concomitant]
  13. TOPROL-XL [Concomitant]
  14. ROXICET [Concomitant]
  15. HYDROCODONE BITARTRATE [Concomitant]
  16. PREVACID [Concomitant]
  17. LIPITOR [Concomitant]
  18. GLUCOTROL XL [Concomitant]

REACTIONS (3)
  - VENTRICULAR FIBRILLATION [None]
  - CARDIAC FAILURE CONGESTIVE [None]
  - CORONARY ARTERY DISEASE [None]
